FAERS Safety Report 11812769 (Version 5)
Quarter: 2016Q1

REPORT INFORMATION
  Report Type: Report from Study
  Country: CA (occurrence: CA)
  Receive Date: 20151209
  Receipt Date: 20160208
  Transmission Date: 20160525
  Serious: Yes (Other)
  Sender: FDA-Public Use
  Company Number: CA-ROCHE-1148858

PATIENT
  Age: 41 Year
  Sex: Female
  Weight: 72.1 kg

DRUGS (9)
  1. DIPHENHYDRAMINE HCL [Concomitant]
     Active Substance: DIPHENHYDRAMINE HYDROCHLORIDE
     Indication: PREMEDICATION
     Route: 048
     Dates: start: 20100909
  2. FOLIC ACID. [Concomitant]
     Active Substance: FOLIC ACID
  3. LOSEC [Concomitant]
     Active Substance: OMEPRAZOLE
  4. RITUXAN [Suspect]
     Active Substance: RITUXIMAB
     Indication: RHEUMATOID ARTHRITIS
     Dosage: LAST DOSE TAKEN ON 09/DEC/2013
     Route: 042
     Dates: start: 20100909
  5. RITUXAN [Suspect]
     Active Substance: RITUXIMAB
     Dosage: LAST RITUXIMAB INFUSION: 29/MAY/2015
     Route: 042
     Dates: start: 20140915
  6. METHOTREXATE [Concomitant]
     Active Substance: METHOTREXATE
     Route: 048
  7. ACETAMINOPHEN. [Concomitant]
     Active Substance: ACETAMINOPHEN
     Indication: PREMEDICATION
     Route: 048
     Dates: start: 20100909
  8. METHYLPREDNISOLONE. [Concomitant]
     Active Substance: METHYLPREDNISOLONE
     Indication: PREMEDICATION
     Route: 042
     Dates: start: 20100909
  9. NAPROXEN. [Concomitant]
     Active Substance: NAPROXEN
     Dosage: AS REQUIRED.
     Route: 065

REACTIONS (20)
  - Throat irritation [Recovered/Resolved]
  - Infusion related reaction [Unknown]
  - Anaemia [Unknown]
  - Ear pruritus [Recovered/Resolved]
  - Oxygen saturation decreased [Unknown]
  - Tinea infection [Unknown]
  - Sinus disorder [Not Recovered/Not Resolved]
  - Heart rate decreased [Unknown]
  - Blood pressure diastolic decreased [Unknown]
  - Weight decreased [Not Recovered/Not Resolved]
  - Premature menopause [Unknown]
  - Headache [Not Recovered/Not Resolved]
  - Oral herpes [Recovering/Resolving]
  - Infusion related reaction [Unknown]
  - Nasal congestion [Not Recovered/Not Resolved]
  - Nasal congestion [Not Recovered/Not Resolved]
  - Menorrhagia [Not Recovered/Not Resolved]
  - Rash [Not Recovered/Not Resolved]
  - Paronychia [Not Recovered/Not Resolved]
  - Nasopharyngitis [Unknown]

NARRATIVE: CASE EVENT DATE: 201210
